FAERS Safety Report 9916038 (Version 1)
Quarter: 2014Q1

REPORT INFORMATION
  Report Type: Spontaneous
  Country: DE (occurrence: DE)
  Receive Date: 20140221
  Receipt Date: 20140221
  Transmission Date: 20141002
  Serious: Yes (Other)
  Sender: FDA-Public Use
  Company Number: DE-BAYER-2014-026365

PATIENT
  Age: 45 Year
  Sex: Female

DRUGS (2)
  1. MIRENA [Suspect]
     Dosage: 20 MCG/24HR, CONT
     Route: 015
     Dates: start: 200804, end: 20130425
  2. MIRENA [Suspect]
     Dosage: 20 MCG/24HR, CONT
     Route: 015
     Dates: start: 20130425

REACTIONS (7)
  - Embedded device [Recovered/Resolved]
  - Uterine polyp [Recovered/Resolved]
  - Metrorrhagia [Recovered/Resolved]
  - Endometrial hyperplasia [Recovered/Resolved]
  - Off label use [Not Recovered/Not Resolved]
  - Device misuse [None]
  - Multiple use of single-use product [None]
